FAERS Safety Report 4883238-9 (Version None)
Quarter: 2006Q1

REPORT INFORMATION
  Report Type: 
  Country: None (occurrence: None)
  Receive Date: 20060117
  Receipt Date: 20060117
  Transmission Date: 20060701
  Serious: Yes (Life-Threatening, Hospitalization)
  Sender: FDA-Public Use
  Company Number: None

PATIENT
  Sex: Male
  Weight: 67.586 kg

DRUGS (3)
  1. PACLITAXEL [Suspect]
     Indication: LUNG NEOPLASM MALIGNANT
     Dosage: 50 MG/M2 WEEKLY IV DRIP
     Route: 041
     Dates: start: 20051212, end: 20060109
  2. CARBOPLATIN [Suspect]
     Indication: LUNG NEOPLASM MALIGNANT
     Dosage: AUC 2.0 WEEKLY IV DRIP
     Route: 041
     Dates: start: 20051212, end: 20060109
  3. THORACIC RADIOTHERAPY [Concomitant]

REACTIONS (7)
  - ANOREXIA [None]
  - ATRIAL FIBRILLATION [None]
  - BLOOD PRESSURE ORTHOSTATIC ABNORMAL [None]
  - CONSTIPATION [None]
  - DEHYDRATION [None]
  - INADEQUATE ANALGESIA [None]
  - ORAL INTAKE REDUCED [None]
